FAERS Safety Report 5800842-1 (Version None)
Quarter: 2008Q3

REPORT INFORMATION
  Report Type: 
  Country: None (occurrence: None)
  Receive Date: 20080701
  Receipt Date: 20080618
  Transmission Date: 20090109
  Serious: Yes (Disabling)
  Sender: FDA-Public Use
  Company Number: 2008AL007460

PATIENT
  Age: 77 Year
  Sex: Male

DRUGS (5)
  1. IBUPROFEN [Suspect]
     Dosage: 400 MG; TID
     Dates: start: 20080401
  2. CLOPIDOGREL [Concomitant]
  3. ENTACAPONE [Concomitant]
  4. ROPINIROLE [Concomitant]
  5. MADOPAR [Concomitant]

REACTIONS (3)
  - CONFUSIONAL STATE [None]
  - DRUG INTERACTION [None]
  - HALLUCINATION, VISUAL [None]
